FAERS Safety Report 9010137 (Version 19)
Quarter: 2013Q4

REPORT INFORMATION
  Report Type: Spontaneous
  Country: IE (occurrence: IE)
  Receive Date: 20130110
  Receipt Date: 20131009
  Transmission Date: 20140711
  Serious: Yes (Death, Hospitalization, Other)
  Sender: FDA-Public Use
  Company Number: PHFR2013IE000518

PATIENT
  Age: 55 Year
  Sex: Male

DRUGS (9)
  1. CLOZARIL [Suspect]
     Indication: SCHIZOPHRENIA
     Dosage: 300 MG, 100/200 MG
     Route: 048
     Dates: start: 20011214
  2. CLOZARIL [Suspect]
     Dosage: 425 MG (175 MG AT MORNING AND 250 MG AT NIGHT)
  3. CLOZARIL [Suspect]
     Dosage: UNK
     Dates: end: 20130729
  4. CITALOPRAM [Concomitant]
     Indication: ANXIETY
     Dosage: 10 MG OD ALTERNATE DAYS
     Route: 048
  5. PREDNISOLONE [Concomitant]
     Dosage: UNK FOR 2 DAYS
  6. GLUCOPHAGE [Concomitant]
     Dosage: 1000 MG, BID
  7. LIPITOR [Concomitant]
     Dosage: 20 MG, AT NIGHT
  8. COZAAR [Concomitant]
     Dosage: 1 DF, DAILY
  9. PROTIUM [Concomitant]
     Dosage: 20 MG, QD

REACTIONS (17)
  - Small cell lung cancer metastatic [Fatal]
  - Lung neoplasm malignant [Fatal]
  - Metastases to liver [Not Recovered/Not Resolved]
  - Metastases to bone [Not Recovered/Not Resolved]
  - Metastases to adrenals [Unknown]
  - Metastases to lymph nodes [Not Recovered/Not Resolved]
  - Lymphadenopathy mediastinal [Recovering/Resolving]
  - Drug prescribing error [Recovering/Resolving]
  - White blood cell count decreased [Recovered/Resolved]
  - Neutropenia [Recovered/Resolved]
  - Neoplasm malignant [Unknown]
  - Vascular compression [Recovering/Resolving]
  - Venous occlusion [Unknown]
  - Neutrophil count increased [Recovered/Resolved]
  - Malaise [Recovering/Resolving]
  - White blood cell count increased [Recovered/Resolved]
  - Platelet count decreased [Not Recovered/Not Resolved]
